FAERS Safety Report 10626051 (Version 1)
Quarter: 2014Q4

REPORT INFORMATION
  Report Type: Spontaneous
  Country: RU (occurrence: RU)
  Receive Date: 20141204
  Receipt Date: 20141204
  Transmission Date: 20150529
  Serious: Yes (Death, Life-Threatening, Other)
  Sender: FDA-Public Use
  Company Number: RU-ASTRAZENECA-2014SE91313

PATIENT
  Age: 25529 Day
  Sex: Male
  Weight: 100 kg

DRUGS (9)
  1. HEPARIN [Concomitant]
     Active Substance: HEPARIN SODIUM
     Indication: ACUTE MYOCARDIAL INFARCTION
     Route: 040
     Dates: start: 20141119, end: 20141119
  2. KETOROL [Concomitant]
     Active Substance: KETOROLAC TROMETHAMINE
     Indication: ACUTE MYOCARDIAL INFARCTION
     Route: 040
     Dates: start: 20141119, end: 20141119
  3. ADRENALINE [Concomitant]
     Active Substance: EPINEPHRINE
     Indication: RESPIRATORY ARREST
     Route: 040
     Dates: start: 20141119, end: 20141119
  4. CARDIOMAGNYL [Concomitant]
     Active Substance: ASPIRIN\MAGNESIUM HYDROXIDE
  5. SIMVASTATIN. [Concomitant]
     Active Substance: SIMVASTATIN
  6. MORPHINE [Concomitant]
     Active Substance: MORPHINE
     Indication: ACUTE MYOCARDIAL INFARCTION
     Route: 040
     Dates: start: 20141119, end: 20141119
  7. LORISTA [Concomitant]
     Active Substance: LOSARTAN POTASSIUM
  8. BRILINTA [Suspect]
     Active Substance: TICAGRELOR
     Indication: ACUTE MYOCARDIAL INFARCTION
     Route: 048
     Dates: start: 20141119, end: 20141119
  9. HEPARIN [Concomitant]
     Active Substance: HEPARIN SODIUM
     Indication: ACUTE MYOCARDIAL INFARCTION
     Route: 041
     Dates: start: 20141119, end: 20141119

REACTIONS (4)
  - Thrombosis in device [Fatal]
  - Cardiac failure acute [Fatal]
  - Aortic dissection [Unknown]
  - Coronary artery reocclusion [Unknown]

NARRATIVE: CASE EVENT DATE: 20141119
